FAERS Safety Report 4658939-8 (Version None)
Quarter: 2005Q2

REPORT INFORMATION
  Report Type: 
  Country: None (occurrence: None)
  Receive Date: 20050509
  Receipt Date: 20050428
  Transmission Date: 20051028
  Serious: No
  Sender: FDA-Public Use
  Company Number: 05P-028-0295254-00

PATIENT
  Age: 48 Year
  Sex: Female
  Weight: 169 kg

DRUGS (3)
  1. HUMIRA [Suspect]
     Indication: RHEUMATOID ARTHRITIS
     Dosage: 40 MG, 1 IN 2 WK, SUBCUTANEOUS
     Route: 058
     Dates: start: 20050127, end: 20050310
  2. METHOTREXATE [Concomitant]
  3. ACETAMINOPHEN W/ CODEINE [Concomitant]

REACTIONS (5)
  - CONVULSION [None]
  - HEADACHE [None]
  - INFLUENZA [None]
  - NECK PAIN [None]
  - VOMITING [None]
